FAERS Safety Report 4332387-2 (Version None)
Quarter: 2004Q2

REPORT INFORMATION
  Report Type: 
  Country: None (occurrence: None)
  Receive Date: 20040401
  Receipt Date: 20040322
  Transmission Date: 20050107
  Serious: Yes (Other)
  Sender: FDA-Public Use
  Company Number: SP-2004-001587

PATIENT
  Age: 43 Year
  Sex: Female
  Weight: 82 kg

DRUGS (9)
  1. OLMETEC 10 [Suspect]
     Indication: HYPERTENSION
     Dosage: 10 MG QD PO
     Route: 048
     Dates: start: 20040214, end: 20040216
  2. BENALAPRIL [Concomitant]
  3. BELOC ZOK [Concomitant]
  4. TORASEMIDE 10 [Concomitant]
  5. PRAVASIN [Concomitant]
  6. NATRIUMHYDROGENCARBONATE [Concomitant]
  7. BONIDIOL [Concomitant]
  8. ALLOPURINOL 100 [Concomitant]
  9. PARACETAMOL 500 [Concomitant]

REACTIONS (1)
  - ANGIONEUROTIC OEDEMA [None]
